FAERS Safety Report 8342813-X (Version None)
Quarter: 2012Q2

REPORT INFORMATION
  Report Type: 
  Country: None (occurrence: None)
  Receive Date: 20120504
  Receipt Date: 20120504
  Transmission Date: 20120825
  Serious: Yes (Hospitalization)
  Sender: FDA-Public Use
  Company Number: None

PATIENT

DRUGS (4)
  1. ALBUTEROL [Concomitant]
  2. METHYLPREDNISOLONE INJ [Concomitant]
  3. ERBITUX [Suspect]
     Dosage: 500 MG
  4. NYSTATIN [Concomitant]

REACTIONS (6)
  - DYSPNOEA [None]
  - PRODUCTIVE COUGH [None]
  - PNEUMONITIS [None]
  - LYMPHADENOPATHY [None]
  - COMPUTERISED TOMOGRAM ABNORMAL [None]
  - SPUTUM DISCOLOURED [None]
